FAERS Safety Report 9324227 (Version 1)
Quarter: 2013Q2

REPORT INFORMATION
  Report Type: Spontaneous
  Country: US (occurrence: None)
  Receive Date: 20130529
  Receipt Date: 20130529
  Transmission Date: 20140414
  Serious: Yes (Other)
  Sender: FDA-Public Use
  Company Number: AUR-APL-2013-04319

PATIENT
  Age: 43 Year
  Sex: Male

DRUGS (2)
  1. TOPIRAMATE (TOPIRAMATE) [Suspect]
     Indication: HEADACHE
  2. VALPROATE [Suspect]
     Indication: BIPOLAR DISORDER

REACTIONS (3)
  - Convulsion [None]
  - Drug ineffective [None]
  - Arachnoid cyst [None]
